FAERS Safety Report 10365341 (Version 1)
Quarter: 2014Q3

REPORT INFORMATION
  Report Type: Spontaneous
  Country: US (occurrence: US)
  Receive Date: 20140806
  Receipt Date: 20140806
  Transmission Date: 20150326
  Serious: No
  Sender: FDA-Public Use
  Company Number: US-PFIZER INC-2014216484

PATIENT
  Age: 70 Year
  Sex: Male
  Weight: 54.42 kg

DRUGS (2)
  1. NITROSTAT [Suspect]
     Active Substance: NITROGLYCERIN
     Indication: PROPHYLAXIS
  2. NITROSTAT [Suspect]
     Active Substance: NITROGLYCERIN
     Indication: CHEST PAIN
     Dosage: 1 DF, AS NEEDED

REACTIONS (1)
  - Glossodynia [Unknown]

NARRATIVE: CASE EVENT DATE: 2014
